FAERS Safety Report 5504867-5 (Version None)
Quarter: 2007Q4

REPORT INFORMATION
  Report Type: 
  Country: None (occurrence: None)
  Receive Date: 20071102
  Receipt Date: 20071023
  Transmission Date: 20080405
  Serious: Yes (Death)
  Sender: FDA-Public Use
  Company Number: US-JNJFOC-20060800455

PATIENT
  Sex: Female
  Weight: 90 kg

DRUGS (3)
  1. ORTHO EVRA [Suspect]
     Indication: CONTRACEPTION
     Route: 062
  2. DEPO-PROVERA [Concomitant]
     Indication: DRUG USE FOR UNKNOWN INDICATION
     Route: 065
  3. PREDNISONE [Concomitant]
     Route: 065

REACTIONS (26)
  - BLOOD AMYLASE INCREASED [None]
  - BLOOD CREATINE PHOSPHOKINASE INCREASED [None]
  - BLOOD LACTATE DEHYDROGENASE INCREASED [None]
  - BLOOD PRESSURE DECREASED [None]
  - BLOOD PRESSURE FLUCTUATION [None]
  - BRAIN DEATH [None]
  - BRAIN HERNIATION [None]
  - BRAIN OEDEMA [None]
  - GRAND MAL CONVULSION [None]
  - HAEMORRHAGE INTRACRANIAL [None]
  - HEART RATE INCREASED [None]
  - HYPOREFLEXIA [None]
  - MICROANGIOPATHIC HAEMOLYTIC ANAEMIA [None]
  - MITRAL VALVE CALCIFICATION [None]
  - MITRAL VALVE INCOMPETENCE [None]
  - RED BLOOD CELL SCHISTOCYTES PRESENT [None]
  - RENAL FAILURE [None]
  - RENAL HAEMORRHAGE [None]
  - RENAL TUBULAR NECROSIS [None]
  - RESPIRATORY FAILURE [None]
  - SUBDURAL HAEMATOMA [None]
  - SWELLING FACE [None]
  - THROMBOTIC THROMBOCYTOPENIC PURPURA [None]
  - VAGINAL CANDIDIASIS [None]
  - VAGINAL HAEMORRHAGE [None]
  - WHITE BLOOD CELL COUNT INCREASED [None]
